FAERS Safety Report 5285210-6 (Version None)
Quarter: 2007Q1

REPORT INFORMATION
  Report Type: 
  Country: None (occurrence: None)
  Receive Date: 20061229
  Receipt Date: 20060918
  Transmission Date: 20070707
  Serious: Yes (Other)
  Sender: FDA-Public Use
  Company Number: 2006UW18197

PATIENT
  Age: 64 Year
  Sex: Female
  Weight: 91.625 kg

DRUGS (4)
  1. CRESTOR [Suspect]
     Indication: BLOOD CHOLESTEROL INCREASED
     Dosage: 5 MG PO
     Route: 048
  2. PREVACID [Concomitant]
  3. DEMADEX [Concomitant]
  4. ALTACE [Concomitant]

REACTIONS (3)
  - DYSPEPSIA [None]
  - ERUCTATION [None]
  - NAUSEA [None]
